FAERS Safety Report 6461792-3 (Version None)
Quarter: 2009Q4

REPORT INFORMATION
  Report Type: 
  Country: None (occurrence: None)
  Receive Date: 20091130
  Receipt Date: 20091118
  Transmission Date: 20100525
  Serious: Yes (Other)
  Sender: FDA-Public Use
  Company Number: PHHY2009JP45464

PATIENT
  Age: 15 Year
  Sex: Female

DRUGS (13)
  1. NEORAL [Suspect]
     Indication: FOCAL SEGMENTAL GLOMERULOSCLEROSIS
     Dosage: 100 MG/DAY
     Route: 048
     Dates: start: 20090411, end: 20090420
  2. NEORAL [Suspect]
     Dosage: 120 MG/DAY
     Route: 048
     Dates: start: 20090421, end: 20090518
  3. NEORAL [Suspect]
     Dosage: 140 MG/DAY
     Route: 048
     Dates: start: 20090519, end: 20090601
  4. NEORAL [Suspect]
     Dosage: 50 MG/DAY
     Route: 048
     Dates: start: 20090602, end: 20090603
  5. NEORAL [Suspect]
     Dosage: 40 MG/DAY (0.75 MG/KG/DAY)
     Route: 048
     Dates: start: 20090613
  6. CELLCEPT [Concomitant]
     Indication: NEPHROTIC SYNDROME
     Dosage: UNK
     Route: 048
     Dates: start: 20090501, end: 20090501
  7. CELLCEPT [Concomitant]
     Indication: FOCAL SEGMENTAL GLOMERULOSCLEROSIS
  8. PREDNISOLONE [Concomitant]
     Indication: NEPHROTIC SYNDROME
     Dosage: UNK
     Route: 048
     Dates: start: 20090411
  9. PREDNISOLONE [Concomitant]
     Indication: FOCAL SEGMENTAL GLOMERULOSCLEROSIS
  10. VALSARTAN [Concomitant]
  11. DILAZEP HYDROCHLORIDE [Concomitant]
  12. AMLODIPINE [Concomitant]
  13. ALFACALCIDOL [Concomitant]
     Dosage: UNK

REACTIONS (5)
  - FOCAL SEGMENTAL GLOMERULOSCLEROSIS [None]
  - HEADACHE [None]
  - HYPERTENSION [None]
  - IMMUNOSUPPRESSANT DRUG LEVEL INCREASED [None]
  - NEPHROPATHY TOXIC [None]
